FAERS Safety Report 12584987 (Version 2)
Quarter: 2016Q3

REPORT INFORMATION
  Report Type: Spontaneous
  Country: IT (occurrence: IT)
  Receive Date: 20160722
  Receipt Date: 20160811
  Transmission Date: 20161109
  Serious: Yes (Hospitalization, Other)
  Sender: FDA-Public Use
  Company Number: IT-AMGEN-ITASP2016093098

PATIENT
  Age: 54 Year
  Sex: Female

DRUGS (6)
  1. MICARDISPLUS [Concomitant]
     Active Substance: HYDROCHLOROTHIAZIDE\TELMISARTAN
     Dosage: UNK
  2. METOCAL VITAMINA D3 [Concomitant]
     Dosage: UNK
  3. TAMOXIFENE [Concomitant]
     Active Substance: TAMOXIFEN
     Dosage: 20 MG, UNK
  4. PROLIA [Suspect]
     Active Substance: DENOSUMAB
     Indication: OSTEOPOROSIS
     Dosage: 60 MG/ML, CYCLIC
     Route: 058
     Dates: start: 20130101, end: 20151001
  5. TAPAZOLE [Concomitant]
     Active Substance: METHIMAZOLE
     Dosage: 5 MG, UNK
  6. DIDROGYL [Concomitant]
     Active Substance: CALCIFEDIOL
     Dosage: 0.15 MG/ML, UNK

REACTIONS (1)
  - Osteonecrosis of jaw [Unknown]

NARRATIVE: CASE EVENT DATE: 20151201
